FAERS Safety Report 12758404 (Version 1)
Quarter: 2016Q3

REPORT INFORMATION
  Report Type: Spontaneous
  Country: US (occurrence: US)
  Receive Date: 20160919
  Receipt Date: 20160919
  Transmission Date: 20161109
  Serious: No
  Sender: FDA-Public Use
  Company Number: US-GLAXOSMITHKLINE-US2016133260

PATIENT
  Age: 57 Year
  Sex: Female

DRUGS (1)
  1. VENTOLIN HFA [Suspect]
     Active Substance: ALBUTEROL SULFATE
     Indication: ASTHMA
     Dosage: 2 PUFF(S), VA
     Route: 055
     Dates: start: 2009

REACTIONS (2)
  - Fall [Recovered/Resolved]
  - Tooth fracture [Recovered/Resolved with Sequelae]

NARRATIVE: CASE EVENT DATE: 201608
